FAERS Safety Report 6019032-5 (Version None)
Quarter: 2008Q4

REPORT INFORMATION
  Report Type: 
  Country: None (occurrence: None)
  Receive Date: 20081221
  Receipt Date: 20081221
  Transmission Date: 20090506
  Serious: Yes (Hospitalization)
  Sender: FDA-Public Use
  Company Number: None

PATIENT
  Age: 49 Year
  Sex: Male
  Weight: 96 kg

DRUGS (10)
  1. LITHIUM CARBONATE [Suspect]
     Indication: AFFECTIVE DISORDER
     Dosage: 600 MG BID PO
     Route: 048
  2. LITHIUM CARBONATE [Suspect]
     Indication: SCHIZOPHRENIA
     Dosage: 600 MG BID PO
     Route: 048
  3. CLOZAPINE [Concomitant]
  4. ARIPIPRAZOLE [Concomitant]
  5. BENZTROPINE MESYLATE [Concomitant]
  6. ATENOLOL [Concomitant]
  7. LEVOTHYROXINE SODIUM [Concomitant]
  8. ASPIRIN [Concomitant]
  9. HYDROCHLOROTHIAZIDE [Concomitant]
  10. OMEPRAZOLE [Concomitant]

REACTIONS (7)
  - ABDOMINAL PAIN [None]
  - ANTIPSYCHOTIC DRUG LEVEL INCREASED [None]
  - ASTHENIA [None]
  - DIABETES INSIPIDUS [None]
  - HYPOKALAEMIA [None]
  - LETHARGY [None]
  - RENAL FAILURE [None]
